FAERS Safety Report 9976311 (Version 1)
Quarter: 2014Q1

REPORT INFORMATION
  Report Type: Spontaneous
  Country: US (occurrence: US)
  Receive Date: 20140306
  Receipt Date: 20140306
  Transmission Date: 20141002
  Serious: No
  Sender: FDA-Public Use
  Company Number: US-ABBVIE-13P-163-1167451-00

PATIENT
  Age: 34 Year
  Sex: Male

DRUGS (5)
  1. HUMIRA [Suspect]
     Indication: PSORIASIS
     Route: 058
     Dates: start: 20070927, end: 2010
  2. HUMIRA [Suspect]
     Route: 058
     Dates: start: 2010, end: 20131010
  3. CLOBETASOL OINTMENT [Concomitant]
     Indication: PSORIASIS
  4. TACLONEX OINTMENT [Concomitant]
     Indication: PSORIASIS
  5. TRIAMCINOLONE [Concomitant]
     Indication: PSORIASIS

REACTIONS (5)
  - Paraesthesia [Not Recovered/Not Resolved]
  - Paraesthesia [Not Recovered/Not Resolved]
  - Paraesthesia [Not Recovered/Not Resolved]
  - Paraesthesia [Not Recovered/Not Resolved]
  - Paraesthesia [Not Recovered/Not Resolved]
